FAERS Safety Report 11686531 (Version 3)
Quarter: 2016Q1

REPORT INFORMATION
  Report Type: Spontaneous
  Country: ES (occurrence: ES)
  Receive Date: 20151030
  Receipt Date: 20160112
  Transmission Date: 20160525
  Serious: Yes (Life-Threatening, Hospitalization)
  Sender: FDA-Public Use
  Company Number: ES-ELI_LILLY_AND_COMPANY-ES201510008522

PATIENT
  Age: 43 Year
  Sex: Male

DRUGS (2)
  1. ALIMTA [Suspect]
     Active Substance: PEMETREXED DISODIUM
     Indication: LUNG NEOPLASM MALIGNANT
     Dosage: 935 MG, ONCE EVERY THREE WEEKS
     Route: 042
     Dates: start: 20140522, end: 20140724
  2. CISPLATIN. [Suspect]
     Active Substance: CISPLATIN
     Indication: LUNG NEOPLASM MALIGNANT
     Dosage: 140 MG, EVERY THREE WEEKS
     Route: 042
     Dates: start: 20140522, end: 20140724

REACTIONS (2)
  - Hepatitis fulminant [Recovering/Resolving]
  - Hepatitis B [Recovered/Resolved]

NARRATIVE: CASE EVENT DATE: 20140813
